FAERS Safety Report 8641877 (Version 2)
Quarter: 2013Q1

REPORT INFORMATION
  Report Type: Spontaneous
  Country: US (occurrence: None)
  Receive Date: 20120615
  Receipt Date: 20121106
  Transmission Date: 20140127
  Serious: Yes (Hospitalization)
  Sender: FDA-Public Use
  Company Number: 2012-2297

PATIENT
  Age: 13 Year
  Sex: Male
  Weight: 31.7 kg

DRUGS (2)
  1. INCRELEX [Suspect]
     Indication: GROWTH HORMONE DEFICIENCY
     Dosage: 24 UNITS (12 UNITS, 2 IN 1 D), SUBCUTANEOUS
     Route: 058
     Dates: start: 20120509, end: 20120517
  2. INCRELEX [Suspect]
     Indication: OFF LABEL USE
     Dosage: 24 UNITS (12 UNITS, 2 IN 1 D), SUBCUTANEOUS
     Route: 058
     Dates: start: 20120509, end: 20120517

REACTIONS (8)
  - Fatigue [None]
  - Chest pain [None]
  - Nasal congestion [None]
  - Off label use [None]
  - Asthenia [None]
  - Dyspnoea [None]
  - Pyrexia [None]
  - Rhinorrhoea [None]
